FAERS Safety Report 8003216-0 (Version None)
Quarter: 2011Q4

REPORT INFORMATION
  Report Type: 
  Country: None (occurrence: None)
  Receive Date: 20111222
  Receipt Date: 20111216
  Transmission Date: 20120403
  Serious: Yes (Other)
  Sender: FDA-Public Use
  Company Number: PHHO2011US021111

PATIENT
  Sex: Female
  Weight: 81.361 kg

DRUGS (5)
  1. BLINDED NO TREATMENT RECEIVED [Suspect]
     Indication: GOUTY ARTHRITIS
     Dosage: DOUBLE BLINDED
     Dates: start: 20110901
  2. TRIAMCINOLONE ACETONIDE [Suspect]
     Indication: GOUTY ARTHRITIS
     Dosage: DOUBLE BLINDED
     Dates: start: 20110901
  3. BLINDED PLACEBO [Suspect]
     Indication: GOUTY ARTHRITIS
     Dosage: DOUBLE BLINDED
     Dates: start: 20110901
  4. ILARIS [Suspect]
     Dosage: DOUBLE BLINDED
     Dates: start: 20110901
  5. ILARIS [Suspect]
     Indication: GOUTY ARTHRITIS
     Dosage: DOUBLE BLINDED
     Dates: start: 20110901

REACTIONS (2)
  - ANAEMIA [None]
  - RECTAL CANCER [None]
